FAERS Safety Report 4527049-2 (Version None)
Quarter: 2004Q4

REPORT INFORMATION
  Report Type: 
  Country: None (occurrence: None)
  Receive Date: 20041129
  Receipt Date: 20040401
  Transmission Date: 20050328
  Serious: Yes (Life-Threatening, Hospitalization)
  Sender: FDA-Public Use
  Company Number: USA040463883

PATIENT
  Age: 18 Year
  Sex: Male

DRUGS (3)
  1. ZYPREXA [Suspect]
     Indication: BIPOLAR DISORDER
  2. ZYPREXA [Suspect]
     Indication: SCHIZOPHRENIA
  3. DEPAKOTE [Concomitant]

REACTIONS (3)
  - CARDIAC FAILURE [None]
  - DEPRESSION [None]
  - OVERDOSE [None]
